FAERS Safety Report 5529458-1 (Version None)
Quarter: 2007Q4

REPORT INFORMATION
  Report Type: 
  Country: None (occurrence: None)
  Receive Date: 20071129
  Receipt Date: 20071121
  Transmission Date: 20080405
  Serious: Yes (Other)
  Sender: FDA-Public Use
  Company Number: US-WYE-H00637307

PATIENT
  Sex: Male
  Weight: 66.2 kg

DRUGS (7)
  1. TORISEL [Suspect]
     Indication: RENAL CELL CARCINOMA STAGE UNSPECIFIED
     Dosage: PATIENT ONLY RECEIVED 1 ML
     Route: 042
     Dates: start: 20071010, end: 20071010
  2. IMODIUM [Concomitant]
     Dosage: AS NEEDED
     Route: 065
  3. METOCLOPRAMIDE [Concomitant]
     Dosage: ^5^ AS NEEDED RARE USE
  4. MS CONTIN [Concomitant]
     Dosage: 15 AS NEEDED AT BED TIME
     Route: 065
  5. HYDROMORPHONE HCL [Concomitant]
     Dosage: 2 MG TAB AS NEEDED
     Route: 065
  6. PARACETAMOL [Concomitant]
     Dosage: AS NEEDED
     Route: 065
  7. ESOMEPRAZOLE [Concomitant]
     Route: 065

REACTIONS (8)
  - CHEST PAIN [None]
  - DYSPNOEA [None]
  - HYPERHIDROSIS [None]
  - HYPERSENSITIVITY [None]
  - HYPOTENSION [None]
  - NAUSEA [None]
  - TACHYCARDIA [None]
  - VOMITING [None]
